FAERS Safety Report 5496156-2 (Version None)
Quarter: 2007Q4

REPORT INFORMATION
  Report Type: 
  Country: None (occurrence: None)
  Receive Date: 20071023
  Receipt Date: 20071023
  Transmission Date: 20080405
  Serious: No
  Sender: FDA-Public Use
  Company Number: None

PATIENT
  Age: 73 Year
  Sex: Female
  Weight: 60.782 kg

DRUGS (10)
  1. DETROL LA [Suspect]
     Indication: INCONTINENCE
     Dosage: 2 MG CAPSULE ONCE DAILY PO
     Route: 048
  2. ADVAIR DISKUS 100/50 [Concomitant]
  3. SINGULAIR [Concomitant]
  4. COMBIVENT [Concomitant]
  5. PREVACID [Concomitant]
  6. LOTREL [Concomitant]
  7. ZOCOR [Concomitant]
  8. SYNTHROID [Concomitant]
  9. PROVENTIL/ATROVENT NEBULIZE [Concomitant]
  10. HUMIBID DM [Concomitant]

REACTIONS (2)
  - ANAPHYLACTIC REACTION [None]
  - CHEST PAIN [None]
